FAERS Safety Report 6792362-5 (Version None)
Quarter: 2010Q2

REPORT INFORMATION
  Report Type: 
  Country: None (occurrence: None)
  Receive Date: 20100624
  Receipt Date: 20080919
  Transmission Date: 20101027
  Serious: Yes (Other)
  Sender: FDA-Public Use
  Company Number: US-PFIZER INC-2008064668

PATIENT
  Sex: Female

DRUGS (3)
  1. MEDROXYPROGESTERONE ACETATE [Suspect]
     Indication: CONTRACEPTION
     Route: 030
     Dates: start: 20080731, end: 20080731
  2. VITAMIN D [Concomitant]
     Dosage: 1 EVERY NA MONTHS
  3. SERTRALINE HYDROCHLORIDE [Concomitant]

REACTIONS (3)
  - ANAPHYLACTIC REACTION [None]
  - DYSPNOEA [None]
  - RASH [None]
